FAERS Safety Report 7408775-4 (Version None)
Quarter: 2011Q2

REPORT INFORMATION
  Report Type: 
  Country: None (occurrence: None)
  Receive Date: 20110412
  Receipt Date: 20110401
  Transmission Date: 20111010
  Serious: Yes (Other)
  Sender: FDA-Public Use
  Company Number: PHFR2011GB02255

PATIENT
  Sex: Female

DRUGS (1)
  1. CLOZARIL [Suspect]
     Indication: SCHIZOPHRENIA
     Dosage: UNK DF, UNK
     Route: 048
     Dates: start: 20110303

REACTIONS (3)
  - HYPERTENSION [None]
  - BUNDLE BRANCH BLOCK RIGHT [None]
  - TACHYCARDIA [None]
